FAERS Safety Report 5506496-6 (Version None)
Quarter: 2007Q4

REPORT INFORMATION
  Report Type: 
  Country: None (occurrence: None)
  Receive Date: 20071105
  Receipt Date: 20071030
  Transmission Date: 20080405
  Serious: Yes (Other)
  Sender: FDA-Public Use
  Company Number: US-MERCK-0710USA00686

PATIENT
  Age: 55 Year
  Sex: Female

DRUGS (7)
  1. JANUVIA [Suspect]
     Indication: DIABETES MELLITUS
     Route: 048
     Dates: start: 20070901
  2. ATENOLOL [Concomitant]
     Route: 048
  3. DYAZIDE [Concomitant]
     Route: 048
  4. ZOCOR [Concomitant]
     Route: 048
  5. ACIPHEX [Concomitant]
     Route: 048
  6. LEVOTHYROXINE SODIUM [Concomitant]
     Route: 048
  7. PAXIL [Concomitant]
     Route: 048

REACTIONS (1)
  - GOUTY ARTHRITIS [None]
